FAERS Safety Report 4545247-9 (Version None)
Quarter: 2004Q4

REPORT INFORMATION
  Report Type: 
  Country: None (occurrence: None)
  Receive Date: 20041222
  Receipt Date: 20040622
  Transmission Date: 20050328
  Serious: Yes (Hospitalization, Other)
  Sender: FDA-Public Use
  Company Number: USA040670783

PATIENT
  Age: 36 Year
  Sex: Female
  Weight: 111 kg

DRUGS (2)
  1. HUMALOG [Suspect]
     Dosage: 110 U DAY
     Dates: start: 20010101
  2. HUMALOG [Suspect]
     Dosage: UNK
     Dates: end: 20010101

REACTIONS (7)
  - BLOOD GLUCOSE INCREASED [None]
  - DRY THROAT [None]
  - NAUSEA [None]
  - NEPHRECTOMY [None]
  - NEUROPATHY [None]
  - VOMITING [None]
  - VULVOVAGINAL DRYNESS [None]
